FAERS Safety Report 23623087 (Version 2)
Quarter: 2024Q2

REPORT INFORMATION
  Report Type: Spontaneous
  Country: US (occurrence: US)
  Receive Date: 20240312
  Receipt Date: 20240529
  Transmission Date: 20240716
  Serious: No
  Sender: FDA-Public Use
  Company Number: US-INSUD PHARMA-2402US01828

PATIENT

DRUGS (3)
  1. PROGESTERONE [Suspect]
     Active Substance: PROGESTERONE
     Indication: Product used for unknown indication
     Dosage: I TAKE IT EVERY NIGHT
     Route: 048
     Dates: start: 202402, end: 202405
  2. PROGESTERONE [Suspect]
     Active Substance: PROGESTERONE
     Dosage: I TAKE IT EVERY NIGHT
     Route: 048
     Dates: end: 202402
  3. ESTROGEN NOS [Concomitant]
     Active Substance: ESTROGENS
     Indication: Product used for unknown indication

REACTIONS (10)
  - Malaise [Not Recovered/Not Resolved]
  - Acne [Recovering/Resolving]
  - Abdominal discomfort [Unknown]
  - Abdominal pain upper [Unknown]
  - Abdominal pain [Recovered/Resolved]
  - Abdominal distension [Unknown]
  - Urticaria [Recovered/Resolved]
  - Product administration interrupted [Unknown]
  - Poor quality product administered [Unknown]
  - Product odour abnormal [Unknown]

NARRATIVE: CASE EVENT DATE: 20240201
